FAERS Safety Report 19922969 (Version 3)
Quarter: 2021Q4

REPORT INFORMATION
  Report Type: Spontaneous
  Country: US (occurrence: US)
  Receive Date: 20211006
  Receipt Date: 20211026
  Transmission Date: 20220303
  Serious: No
  Sender: FDA-Public Use
  Company Number: US-AMGEN-USASP2021151120

PATIENT
  Age: 63 Year
  Sex: Female
  Weight: 73.47 kg

DRUGS (2)
  1. REPATHA [Suspect]
     Active Substance: EVOLOCUMAB
     Indication: Hypercholesterolaemia
     Dosage: 140 MILLIGRAM PER MILLILITER, Q2WK
     Route: 065
     Dates: start: 20180621
  2. REPATHA [Suspect]
     Active Substance: EVOLOCUMAB
     Indication: Blood cholesterol increased

REACTIONS (2)
  - Hernia [Unknown]
  - Product storage error [Unknown]

NARRATIVE: CASE EVENT DATE: 20210928
